FAERS Safety Report 5256740-8 (Version None)
Quarter: 2007Q1

REPORT INFORMATION
  Report Type: 
  Country: None (occurrence: None)
  Receive Date: 20070306
  Receipt Date: 20070223
  Transmission Date: 20070707
  Serious: Yes (Other)
  Sender: FDA-Public Use
  Company Number: US-PFIZER INC-2007015092

PATIENT
  Sex: Female

DRUGS (5)
  1. CHANTIX [Suspect]
     Indication: EX-SMOKER
  2. DIOVAN HCT [Concomitant]
  3. TOPROL-XL [Concomitant]
  4. ELAVIL [Concomitant]
  5. PREDNISONE [Concomitant]

REACTIONS (1)
  - HEART RATE INCREASED [None]
